FAERS Safety Report 4282561-9 (Version None)
Quarter: 2004Q1

REPORT INFORMATION
  Report Type: 
  Country: None (occurrence: None)
  Receive Date: 20040129
  Receipt Date: 20040115
  Transmission Date: 20041129
  Serious: Yes (Other)
  Sender: FDA-Public Use
  Company Number: US-JNJFOC-20040102636

PATIENT
  Age: 30 Year
  Sex: Female
  Weight: 63.05 kg

DRUGS (6)
  1. REMICADE [Suspect]
     Indication: CROHN'S DISEASE
     Dosage: 400 MG, 10 IN, INTRAVENOUS
     Route: 042
     Dates: start: 20020618, end: 20031021
  2. IMURAN [Concomitant]
  3. ASACOL [Concomitant]
  4. FLAGYL [Concomitant]
  5. IRON (IRON) [Concomitant]
  6. NEXIUM [Concomitant]

REACTIONS (1)
  - PERITONEAL TUBERCULOSIS [None]
